FAERS Safety Report 5114608-1 (Version None)
Quarter: 2006Q3

REPORT INFORMATION
  Report Type: 
  Country: None (occurrence: None)
  Receive Date: 20060926
  Receipt Date: 20060915
  Transmission Date: 20061208
  Serious: Yes (Hospitalization)
  Sender: FDA-Public Use
  Company Number: PHNR2006AU01251

PATIENT
  Age: 37 Year
  Sex: Female
  Weight: 59 kg

DRUGS (2)
  1. VOLTAREN [Suspect]
     Indication: PAIN
     Route: 048
     Dates: start: 20060615, end: 20060629
  2. PARACETAMOL [Concomitant]

REACTIONS (6)
  - BACK PAIN [None]
  - DIARRHOEA [None]
  - DYSPNOEA [None]
  - OEDEMA PERIPHERAL [None]
  - POLYURIA [None]
  - RENAL FAILURE ACUTE [None]
